FAERS Safety Report 23395390 (Version 2)
Quarter: 2024Q1

REPORT INFORMATION
  Report Type: Spontaneous
  Country: CA (occurrence: CA)
  Receive Date: 20240112
  Receipt Date: 20240208
  Transmission Date: 20240410
  Serious: Yes (Other)
  Sender: FDA-Public Use
  Company Number: CA-ALK-ABELLO A/S-2024AA000091

PATIENT

DRUGS (3)
  1. EQUUS CABALLUS DANDER\EQUUS CABALLUS HAIR [Suspect]
     Active Substance: EQUUS CABALLUS DANDER\EQUUS CABALLUS HAIR
     Indication: Product used for unknown indication
  2. PHLEUM PRATENSE POLLEN [Suspect]
     Active Substance: PHLEUM PRATENSE POLLEN
     Indication: Product used for unknown indication
  3. STERILE DILUENT FOR ALLERGENIC EXTRACT NOS [Suspect]
     Active Substance: ALBUMIN HUMAN OR GLYCERIN OR PHENOL
     Indication: Product used for unknown indication

REACTIONS (2)
  - Pharyngeal swelling [Unknown]
  - Injection site reaction [Unknown]
